FAERS Safety Report 23448620 (Version 6)
Quarter: 2024Q2

REPORT INFORMATION
  Report Type: Other
  Country: US (occurrence: US)
  Receive Date: 20240127
  Receipt Date: 20240520
  Transmission Date: 20240716
  Serious: No
  Sender: FDA-Public Use
  Company Number: US-TRAVERE-2023TVT00911

PATIENT
  Age: 39 Year
  Sex: Male

DRUGS (10)
  1. FILSPARI [Suspect]
     Active Substance: SPARSENTAN
     Indication: IgA nephropathy
     Route: 048
     Dates: start: 20231213
  2. FILSPARI [Suspect]
     Active Substance: SPARSENTAN
     Route: 048
  3. HYDRALAZINE HCL [Concomitant]
     Active Substance: HYDRALAZINE HYDROCHLORIDE
  4. VITAMIN D2 [Concomitant]
     Active Substance: ERGOCALCIFEROL
  5. FARXIGA [Concomitant]
     Active Substance: DAPAGLIFLOZIN PROPANEDIOL
  6. CARVEDILOL [Concomitant]
     Active Substance: CARVEDILOL
  7. ATORVASTATIN CALCIUM [Concomitant]
     Active Substance: ATORVASTATIN CALCIUM
  8. ALLOPURINOL [Concomitant]
     Active Substance: ALLOPURINOL
  9. SIMVASTATIN [Concomitant]
     Active Substance: SIMVASTATIN
  10. FERROUS SULFATE [Concomitant]
     Active Substance: FERROUS SULFATE

REACTIONS (9)
  - Arthralgia [None]
  - Anaemia [Unknown]
  - Blood uric acid increased [Unknown]
  - Urine flow decreased [Unknown]
  - Urinary retention [Unknown]
  - Pollakiuria [Unknown]
  - Fatigue [Unknown]
  - Myalgia [Unknown]
  - Asthenia [Unknown]

NARRATIVE: CASE EVENT DATE: 20240201
